FAERS Safety Report 8579354-0 (Version None)
Quarter: 2012Q3

REPORT INFORMATION
  Report Type: 
  Country: None (occurrence: None)
  Receive Date: 20120808
  Receipt Date: 20120801
  Transmission Date: 20120928
  Serious: Yes (Hospitalization)
  Sender: FDA-Public Use
  Company Number: IT-BAXTER-2012BAX009407

PATIENT
  Sex: Male

DRUGS (12)
  1. MABCAMPATH [Suspect]
     Route: 058
     Dates: start: 20120109, end: 20120111
  2. ACYCLOVIR [Concomitant]
     Route: 048
     Dates: start: 20120111, end: 20120122
  3. ACYCLOVIR [Concomitant]
     Route: 048
     Dates: start: 20120217
  4. FLECAINIDE ACETATE [Concomitant]
     Indication: ATRIAL FIBRILLATION
     Route: 048
  5. FOLINA                             /00024201/ [Concomitant]
     Route: 048
  6. DECADRON [Suspect]
     Indication: PROPHYLAXIS
     Route: 042
     Dates: start: 20120117, end: 20120117
  7. FLUDARABINE PHOSPHATE [Suspect]
     Route: 042
     Dates: start: 20120109, end: 20120111
  8. OMEPRAZOLE [Concomitant]
     Route: 048
  9. LEVOFLOXACIN [Concomitant]
     Route: 048
  10. DEXAMETHASONE SODIUM PHOSPHATE [Suspect]
     Indication: PROPHYLAXIS
     Route: 030
     Dates: start: 20120118, end: 20120120
  11. CYCLOPHOSPHAMIDE [Suspect]
     Route: 042
     Dates: start: 20120109, end: 20120111
  12. GRANULOKINE [Concomitant]
     Route: 058
     Dates: start: 20120117, end: 20120120

REACTIONS (3)
  - ABDOMINAL PAIN UPPER [None]
  - CYTOMEGALOVIRUS INFECTION [None]
  - OESOPHAGEAL CANDIDIASIS [None]
